FAERS Safety Report 6393372-2 (Version None)
Quarter: 2009Q4

REPORT INFORMATION
  Report Type: 
  Country: None (occurrence: None)
  Receive Date: 20091008
  Receipt Date: 20091005
  Transmission Date: 20100525
  Serious: Yes (Life-Threatening)
  Sender: FDA-Public Use
  Company Number: IT-JNJFOC-20091001226

PATIENT
  Sex: Male

DRUGS (3)
  1. LEVOXACIN [Suspect]
     Indication: BACTERIAL INFECTION
     Route: 048
     Dates: start: 20090914, end: 20090915
  2. LANTUS [Concomitant]
     Route: 050
  3. NOVORAPID [Concomitant]
     Route: 065

REACTIONS (1)
  - PURPURA NON-THROMBOCYTOPENIC [None]
